FAERS Safety Report 5609656-9 (Version None)
Quarter: 2008Q1

REPORT INFORMATION
  Report Type: 
  Country: None (occurrence: None)
  Receive Date: 20080131
  Receipt Date: 20080121
  Transmission Date: 20080703
  Serious: Yes (Hospitalization, Other)
  Sender: FDA-Public Use
  Company Number: B0493210A

PATIENT
  Age: 17 Year
  Sex: Female
  Weight: 60 kg

DRUGS (3)
  1. LAMICTAL [Suspect]
     Route: 048
  2. IBUPROFEN [Suspect]
     Indication: OVERDOSE
     Route: 048
  3. PARACETAMOL [Concomitant]
     Route: 048

REACTIONS (9)
  - AGITATION [None]
  - CONFUSIONAL STATE [None]
  - DRUG LEVEL INCREASED [None]
  - DYSKINESIA [None]
  - LOSS OF CONSCIOUSNESS [None]
  - MYDRIASIS [None]
  - OVERDOSE [None]
  - SUICIDE ATTEMPT [None]
  - VOMITING [None]
